FAERS Safety Report 13528260 (Version 1)
Quarter: 2017Q2

REPORT INFORMATION
  Report Type: Spontaneous
  Country: US (occurrence: US)
  Receive Date: 20170509
  Receipt Date: 20170509
  Transmission Date: 20170830
  Serious: Yes (Hospitalization)
  Sender: FDA-Public Use
  Company Number: US-PFIZER INC-2017181922

PATIENT
  Age: 64 Year
  Sex: Male
  Weight: 79 kg

DRUGS (1)
  1. RAPAMUNE [Suspect]
     Active Substance: SIROLIMUS
     Indication: HEART TRANSPLANT
     Dosage: 3 MG, 1X/DAY (IN THE MORNING)
     Route: 048
     Dates: start: 20060619

REACTIONS (5)
  - Urine output decreased [Recovered/Resolved]
  - Renal disorder [Recovering/Resolving]
  - Product use in unapproved indication [Unknown]
  - Gastroenteritis viral [Recovered/Resolved]
  - Blood pressure increased [Recovered/Resolved]

NARRATIVE: CASE EVENT DATE: 20060619
